FAERS Safety Report 25856774 (Version 1)
Quarter: 2025Q3

REPORT INFORMATION
  Report Type: Spontaneous
  Country: PH (occurrence: PH)
  Receive Date: 20250929
  Receipt Date: 20250929
  Transmission Date: 20251021
  Serious: Yes (Other)
  Sender: CSL BEHRING
  Company Number: PH-BEH-2025219985

PATIENT

DRUGS (1)
  1. ALBUMINAR-25 [Suspect]
     Active Substance: ALBUMIN HUMAN
     Route: 065

REACTIONS (2)
  - Product counterfeit [Unknown]
  - Counterfeit product administered [Unknown]
